FAERS Safety Report 23576985 (Version 1)
Quarter: 2024Q1

REPORT INFORMATION
  Report Type: Spontaneous
  Country: US (occurrence: None)
  Receive Date: 20240228
  Receipt Date: 20240228
  Transmission Date: 20240410
  Serious: No
  Sender: FDA-Public Use
  Company Number: None

PATIENT
  Age: 34 Year
  Sex: Male

DRUGS (1)
  1. RINVOQ [Suspect]
     Active Substance: UPADACITINIB
     Indication: Colitis ulcerative
     Dosage: TAKE 1 TABLET BY MOUTH DAILY FOR 8 WEEKS, THEN BEGIN MANTENANCE DOSING AFTER 8 WEEKS A
     Route: 048
     Dates: start: 202402

REACTIONS (2)
  - Nausea [None]
  - Anorectal disorder [None]
